FAERS Safety Report 8266163-5 (Version None)
Quarter: 2012Q2

REPORT INFORMATION
  Report Type: 
  Country: None (occurrence: None)
  Receive Date: 20120406
  Receipt Date: 20120326
  Transmission Date: 20120825
  Serious: Yes (Other)
  Sender: FDA-Public Use
  Company Number: GB-BRISTOL-MYERS SQUIBB COMPANY-16475337

PATIENT
  Age: 33 Year
  Sex: Female

DRUGS (4)
  1. SPIRONOLACTONE [Concomitant]
     Indication: HYPERTENSION
  2. FUROSEMIDE [Concomitant]
     Indication: HYPERTENSION
  3. AMILORIDE HYDROCHLORIDE [Concomitant]
     Indication: HYPERTENSION
  4. BENDROFLUMETHIAZIDE [Suspect]
     Indication: HYPERTENSION

REACTIONS (1)
  - PRIMARY HYPERALDOSTERONISM [None]
